FAERS Safety Report 6218541-3 (Version None)
Quarter: 2009Q2

REPORT INFORMATION
  Report Type: 
  Country: None (occurrence: None)
  Receive Date: 20090604
  Receipt Date: 20090604
  Transmission Date: 20091009
  Serious: Yes (Other)
  Sender: FDA-Public Use
  Company Number: None

PATIENT
  Age: 47 Year
  Sex: Female
  Weight: 114.76 kg

DRUGS (2)
  1. LEVAQUIN [Suspect]
     Indication: TYMPANIC MEMBRANE PERFORATION
     Dosage: 1 BID PO
     Route: 048
     Dates: start: 20090413, end: 20090416
  2. OFLAXCIN [Suspect]
     Indication: EAR INFECTION
     Dosage: 3 DROPS TID TOP
     Route: 061
     Dates: start: 20090413, end: 20090421

REACTIONS (2)
  - TENDON DISORDER [None]
  - TENDONITIS [None]
